FAERS Safety Report 12743913 (Version 1)
Quarter: 2016Q3

REPORT INFORMATION
  Report Type: Report from Study
  Country: US (occurrence: US)
  Receive Date: 20160914
  Receipt Date: 20160914
  Transmission Date: 20161109
  Serious: Yes (Other)
  Sender: FDA-Public Use
  Company Number: US-GILEAD-2016-0232645

PATIENT
  Age: 64 Year
  Sex: Female

DRUGS (1)
  1. LEDIPASVIR/SOFOSBUVIR [Suspect]
     Active Substance: LEDIPASVIR\SOFOSBUVIR
     Indication: HEPATITIS C VIRUS TEST POSITIVE
     Dosage: 1 DF, QD
     Route: 048
     Dates: end: 20160325

REACTIONS (8)
  - Liver injury [Unknown]
  - Muscle tightness [Unknown]
  - Hypotonia [Unknown]
  - Fatigue [Unknown]
  - Memory impairment [Unknown]
  - Anxiety [Unknown]
  - Nervousness [Unknown]
  - Hunger [Unknown]
